FAERS Safety Report 8263063-1 (Version None)
Quarter: 2012Q2

REPORT INFORMATION
  Report Type: 
  Country: None (occurrence: None)
  Receive Date: 20120405
  Receipt Date: 20120328
  Transmission Date: 20120825
  Serious: Yes (Hospitalization, Other)
  Sender: FDA-Public Use
  Company Number: US-ACTELION-A-US2011-57150

PATIENT

DRUGS (1)
  1. TRACLEER [Suspect]
     Indication: PULMONARY ARTERIAL HYPERTENSION
     Dosage: UNK
     Route: 048
     Dates: start: 20110927

REACTIONS (13)
  - CLOSTRIDIAL INFECTION [None]
  - ARTHRALGIA [None]
  - RESPIRATORY TRACT INFECTION [None]
  - BLOOD GLUCOSE INCREASED [None]
  - VOMITING [None]
  - NAUSEA [None]
  - DIZZINESS [None]
  - DIARRHOEA [None]
  - FLUID RETENTION [None]
  - DYSPNOEA [None]
  - DYSPEPSIA [None]
  - FATIGUE [None]
  - ABDOMINAL PAIN UPPER [None]
